FAERS Safety Report 10208897 (Version 4)
Quarter: 2014Q3

REPORT INFORMATION
  Report Type: Spontaneous
  Country: SK (occurrence: SK)
  Receive Date: 20140530
  Receipt Date: 20140707
  Transmission Date: 20150326
  Serious: Yes (Hospitalization, Other)
  Sender: FDA-Public Use
  Company Number: SK-ELI_LILLY_AND_COMPANY-SK201405007007

PATIENT
  Age: 33 Year
  Sex: Male

DRUGS (8)
  1. SERDOLECT [Concomitant]
     Active Substance: SERTINDOLE
     Dosage: 16 MG, QD
     Route: 065
     Dates: end: 201404
  2. RIVOTRIL [Concomitant]
     Active Substance: CLONAZEPAM
     Dosage: 0.5 MG, EACH EVENING
     Route: 065
  3. HYPNOGEN [Concomitant]
     Active Substance: ZOLPIDEM\ZOLPIDEM TARTRATE
     Dosage: UNK, UNKNOWN
     Route: 065
  4. ESOPREX [Concomitant]
     Dosage: 10 MG, EACH MORNING
     Route: 065
  5. ZYPADHERA [Suspect]
     Active Substance: OLANZAPINE PAMOATE
     Indication: SCHIZOPHRENIA
     Dosage: 405 MG, MONTHLY (1/M)
     Route: 030
     Dates: start: 201310, end: 20140423
  6. AKINETON [Concomitant]
     Active Substance: BIPERIDEN HYDROCHLORIDE
     Dosage: 3 MG, QD
     Route: 065
  7. ELICEA                             /01588502/ [Concomitant]
     Dosage: UNK UNK, UNKNOWN
     Route: 065
  8. RIVOTRIL [Concomitant]
     Active Substance: CLONAZEPAM
     Dosage: 0.25 DF, EACH MORNING
     Route: 065

REACTIONS (1)
  - Sinus bradycardia [Recovered/Resolved]

NARRATIVE: CASE EVENT DATE: 201403
